FAERS Safety Report 4389276-7 (Version None)
Quarter: 2004Q2

REPORT INFORMATION
  Report Type: 
  Country: None (occurrence: None)
  Receive Date: 20040628
  Receipt Date: 20040616
  Transmission Date: 20050107
  Serious: Yes (Life-Threatening, Hospitalization)
  Sender: FDA-Public Use
  Company Number: 2004-06-1133

PATIENT
  Age: 59 Year
  Sex: Male

DRUGS (1)
  1. CELESTAMINE TAB [Suspect]
     Indication: PRURITUS
     Dosage: 2 TABS/DAY ORAL
     Route: 048
     Dates: start: 19940101

REACTIONS (16)
  - ABDOMINAL PAIN [None]
  - ABDOMINAL REBOUND TENDERNESS [None]
  - ACUTE RESPIRATORY DISTRESS SYNDROME [None]
  - BLOOD PRESSURE SYSTOLIC DECREASED [None]
  - CULTURE STOOL POSITIVE [None]
  - DIARRHOEA [None]
  - DIVERTICULITIS [None]
  - HYPOXIA [None]
  - LARGE INTESTINE PERFORATION [None]
  - MALAISE [None]
  - NAUSEA [None]
  - PERITONITIS [None]
  - PRINZMETAL ANGINA [None]
  - PYREXIA [None]
  - SEPTIC SHOCK [None]
  - STAPHYLOCOCCAL INFECTION [None]
